FAERS Safety Report 8116890-5 (Version None)
Quarter: 2012Q1

REPORT INFORMATION
  Report Type: 
  Country: None (occurrence: None)
  Receive Date: 20120206
  Receipt Date: 20120203
  Transmission Date: 20120608
  Serious: Yes (Life-Threatening, Other)
  Sender: FDA-Public Use
  Company Number: PHHY2012IT009034

PATIENT
  Sex: Female

DRUGS (5)
  1. TRIMETON [Concomitant]
  2. PACLITAXEL [Suspect]
     Indication: BREAST CANCER
     Dosage: 90 MG/M2, UNK
     Route: 042
     Dates: start: 20120127, end: 20120127
  3. DEXAMETHASONE SODIUM PHOSPHATE [Concomitant]
  4. NAVOBAN [Concomitant]
  5. ZANTAC [Concomitant]

REACTIONS (5)
  - RASH [None]
  - HYPERTENSION [None]
  - NAUSEA [None]
  - ASPHYXIA [None]
  - LOSS OF CONSCIOUSNESS [None]
